FAERS Safety Report 9466647 (Version 1)
Quarter: 2013Q3

REPORT INFORMATION
  Report Type: Spontaneous
  Country: US (occurrence: None)
  Receive Date: 20130816
  Receipt Date: 20130816
  Transmission Date: 20140515
  Serious: Yes (Hospitalization)
  Sender: FDA-Public Use
  Company Number: None

PATIENT
  Age: 79 Year
  Sex: Male
  Weight: 93.2 kg

DRUGS (2)
  1. WARFARIN [Suspect]
     Indication: ATRIAL FIBRILLATION
     Dates: start: 19991026, end: 20130804
  2. WARFARIN [Suspect]
     Indication: AORTIC VALVE DISEASE
     Dates: start: 19991026, end: 20130804

REACTIONS (7)
  - Gastric haemorrhage [None]
  - Gastritis [None]
  - Large intestine polyp [None]
  - Fatigue [None]
  - Dizziness [None]
  - Haematocrit decreased [None]
  - International normalised ratio increased [None]
